FAERS Safety Report 10033829 (Version 1)
Quarter: 2014Q1

REPORT INFORMATION
  Report Type: Spontaneous
  Country: US (occurrence: US)
  Receive Date: 20140325
  Receipt Date: 20140325
  Transmission Date: 20141002
  Serious: No
  Sender: FDA-Public Use
  Company Number: US-BIOGENIDEC-2014BI025765

PATIENT
  Age: 40 Year
  Sex: Female
  Weight: 70 kg

DRUGS (8)
  1. TECFIDERA [Suspect]
     Indication: MULTIPLE SCLEROSIS
     Route: 048
     Dates: start: 20140218
  2. TECFIDERA [Suspect]
     Indication: MULTIPLE SCLEROSIS
     Route: 048
  3. SUCRALFATE [Concomitant]
  4. HYDROCODONE [Concomitant]
  5. FLUTICASONE [Concomitant]
  6. EVENING PRIMROSE [Concomitant]
  7. VITAMIN D3 [Concomitant]
  8. VITAMIN E [Concomitant]

REACTIONS (15)
  - Chills [Unknown]
  - Pyrexia [Unknown]
  - Discomfort [Unknown]
  - Decreased appetite [Unknown]
  - Anosmia [Not Recovered/Not Resolved]
  - Abdominal distension [Not Recovered/Not Resolved]
  - Flatulence [Not Recovered/Not Resolved]
  - Underdose [Unknown]
  - Hepatic function abnormal [Not Recovered/Not Resolved]
  - Flushing [Recovered/Resolved]
  - Erythema [Recovered/Resolved]
  - Abdominal discomfort [Unknown]
  - Nausea [Unknown]
  - Vomiting [Not Recovered/Not Resolved]
  - Abdominal pain [Not Recovered/Not Resolved]
